FAERS Safety Report 25854193 (Version 1)
Quarter: 2025Q3

REPORT INFORMATION
  Report Type: Spontaneous
  Country: US (occurrence: US)
  Receive Date: 20250926
  Receipt Date: 20250926
  Transmission Date: 20251021
  Serious: No
  Sender: PFIZER
  Company Number: US-PFIZER INC-202300373261

PATIENT
  Age: 47 Year
  Sex: Female
  Weight: 77.11 kg

DRUGS (2)
  1. PAXLOVID [Suspect]
     Active Substance: NIRMATRELVIR\RITONAVIR
     Indication: Viral infection
     Dates: start: 2023, end: 2023
  2. TORADOL [Concomitant]
     Active Substance: KETOROLAC TROMETHAMINE
     Indication: Headache
     Route: 030

REACTIONS (4)
  - Off label use [Unknown]
  - Drug effective for unapproved indication [Unknown]
  - Intentional product misuse [Unknown]
  - Prescription drug used without a prescription [Unknown]
